FAERS Safety Report 22652206 (Version 1)
Quarter: 2023Q2

REPORT INFORMATION
  Report Type: Report from Study
  Country: US (occurrence: US)
  Receive Date: 20230628
  Receipt Date: 20230628
  Transmission Date: 20230722
  Serious: Yes (Other)
  Sender: FDA-Public Use
  Company Number: US-AIMMUNE THERAPEUTICS, INC.-2023AIMT00633

PATIENT

DRUGS (3)
  1. ALLERGENIC EXTRACT- PEANUT ARACHIS HYPOGAEA [Suspect]
     Active Substance: ALLERGENIC EXTRACT- PEANUT ARACHIS HYPOGAEA
     Indication: Food allergy
     Dosage: IDE (0.5MG-6MG), ONCE
     Route: 048
     Dates: start: 20230515, end: 20230515
  2. ALLERGENIC EXTRACT- PEANUT ARACHIS HYPOGAEA [Suspect]
     Active Substance: ALLERGENIC EXTRACT- PEANUT ARACHIS HYPOGAEA
     Dosage: 12 MG, 1X/DAY
     Route: 048
  3. ALLERGENIC EXTRACT- PEANUT ARACHIS HYPOGAEA [Suspect]
     Active Substance: ALLERGENIC EXTRACT- PEANUT ARACHIS HYPOGAEA
     Dosage: 12 MG, ONCE, LAST DOSE PRIOR EVENT
     Route: 048

REACTIONS (6)
  - Anaphylactic reaction [Unknown]
  - Erythema [Unknown]
  - Flushing [Unknown]
  - Chest discomfort [Unknown]
  - Bronchospasm [Unknown]
  - Nausea [Unknown]

NARRATIVE: CASE EVENT DATE: 20230615
